FAERS Safety Report 8307734 (Version 2)
Quarter: 2014Q1

REPORT INFORMATION
  Report Type: Spontaneous
  Country: US (occurrence: US)
  Receive Date: 20111222
  Receipt Date: 20140117
  Transmission Date: 20141002
  Serious: Yes (Other)
  Sender: FDA-Public Use
  Company Number: US-BAYER-2011-121486

PATIENT
  Age: 22 Year
  Sex: Female

DRUGS (4)
  1. YAZ [Suspect]
     Dosage: UNK
     Dates: start: 200803, end: 2009
  2. XOPENEX [Concomitant]
     Dosage: UNK
     Dates: start: 20090616
  3. PRILOSEC [Concomitant]
     Dosage: UNK
  4. DEPO-PROVERA [Concomitant]
     Dosage: UNK

REACTIONS (6)
  - Gallbladder disorder [None]
  - Post cholecystectomy syndrome [None]
  - Injury [None]
  - Pain [None]
  - Anxiety [None]
  - Cholecystitis chronic [None]
